FAERS Safety Report 9685446 (Version 3)
Quarter: 2015Q2

REPORT INFORMATION
  Report Type: Spontaneous
  Country: US (occurrence: US)
  Receive Date: 20131113
  Receipt Date: 20150617
  Transmission Date: 20150821
  Serious: Yes (Life-Threatening, Hospitalization)
  Sender: FDA-Public Use
  Company Number: US-BAYER-2013-135521

PATIENT
  Age: 26 Year
  Sex: Female

DRUGS (2)
  1. NUVARING [Concomitant]
     Active Substance: ETHINYL ESTRADIOL\ETONOGESTREL
     Dosage: UNK
     Dates: start: 20100107
  2. MIRENA [Suspect]
     Active Substance: LEVONORGESTREL
     Dosage: 20 MCG/24HR, CONT
     Route: 015
     Dates: start: 201001, end: 2011

REACTIONS (18)
  - General physical health deterioration [None]
  - Pregnancy with contraceptive device [None]
  - Headache [None]
  - Feeling hot [None]
  - Malaise [None]
  - Scar [None]
  - Uterine perforation [None]
  - Abdominal discomfort [None]
  - Nausea [None]
  - Mood swings [None]
  - Pain [None]
  - Anhedonia [None]
  - Deformity [None]
  - Anxiety [None]
  - Injury [None]
  - Drug ineffective [None]
  - Diarrhoea [None]
  - Emotional distress [None]

NARRATIVE: CASE EVENT DATE: 201105
